FAERS Safety Report 8418194-X (Version None)
Quarter: 2012Q2

REPORT INFORMATION
  Report Type: 
  Country: None (occurrence: None)
  Receive Date: 20120323
  Receipt Date: 20110219
  Transmission Date: 20120825
  Serious: Yes (Other)
  Sender: FDA-Public Use
  Company Number: 163-21880-11022873

PATIENT
  Age: 68 Year
  Sex: Male

DRUGS (3)
  1. REVLIMID [Suspect]
     Indication: MULTIPLE MYELOMA
     Dosage: 25 MG, DAILY X 21 DAYS, PO ; 25 MG, DAILY X 21 DAYS, PO ; 25 MG, PO
     Route: 048
     Dates: start: 20101224
  2. REVLIMID [Suspect]
     Indication: MULTIPLE MYELOMA
     Dosage: 25 MG, DAILY X 21 DAYS, PO ; 25 MG, DAILY X 21 DAYS, PO ; 25 MG, PO
     Route: 048
     Dates: start: 20101216
  3. REVLIMID [Suspect]
     Indication: MULTIPLE MYELOMA
     Dosage: 25 MG, DAILY X 21 DAYS, PO ; 25 MG, DAILY X 21 DAYS, PO ; 25 MG, PO
     Route: 048
     Dates: start: 20101101

REACTIONS (2)
  - NASOPHARYNGITIS [None]
  - INFLUENZA [None]
